FAERS Safety Report 18073603 (Version 1)
Quarter: 2020Q3

REPORT INFORMATION
  Report Type: Spontaneous
  Country: IN (occurrence: IN)
  Receive Date: 20200727
  Receipt Date: 20200727
  Transmission Date: 20201103
  Serious: Yes (Other)
  Sender: FDA-Public Use
  Company Number: IN-GLENMARK PHARMACEUTICALS-2020GMK047901

PATIENT

DRUGS (6)
  1. EUMOSONE [Concomitant]
     Indication: LICHEN PLANUS
     Dosage: UNK, AM (IN MORNING)
     Route: 061
     Dates: start: 20191112
  2. GRISOVIN [Concomitant]
     Active Substance: GRISEOFULVIN
     Indication: LICHEN PLANUS
     Dosage: UNK, BID
     Route: 065
     Dates: start: 20191112
  3. CANDID MOUTH PAINT [Suspect]
     Active Substance: CLOTRIMAZOLE
     Indication: ORAL LICHEN PLANUS
     Dosage: UNK, OD (IN THE AFTERNOON)
     Dates: start: 20191112
  4. TACROZ OINTMENT 0.1% [Suspect]
     Active Substance: TACROLIMUS
     Indication: ORAL LICHEN PLANUS
     Dosage: UNK, HS (AT NIGHT); ROUTE: ORAL CAVITY ON TONGUE AND TOPICAL ON PENIS
     Route: 050
     Dates: start: 20191112
  5. TACROZ OINTMENT 0.1% [Suspect]
     Active Substance: TACROLIMUS
     Indication: LICHEN PLANUS
     Dosage: UNK, HS (AT NIGHT); ROUTE: ORAL CAVITY ON TONGUE AND TOPICAL ON PENIS
     Route: 050
     Dates: end: 202005
  6. KENACORT [Concomitant]
     Active Substance: TRIAMCINOLONE
     Indication: ORAL LICHEN PLANUS
     Dosage: UNK, AM
     Route: 048
     Dates: start: 20191112

REACTIONS (9)
  - Epiglottic oedema [Not Recovered/Not Resolved]
  - Feeding disorder [Recovering/Resolving]
  - Incorrect route of product administration [Unknown]
  - Product use in unapproved indication [Unknown]
  - Gastrooesophageal reflux disease [Unknown]
  - Drug effective for unapproved indication [Unknown]
  - Throat irritation [Recovering/Resolving]
  - Dysphagia [Recovering/Resolving]
  - Feeling abnormal [Unknown]

NARRATIVE: CASE EVENT DATE: 20191112
